FAERS Safety Report 20171258 (Version 2)
Quarter: 2022Q1

REPORT INFORMATION
  Report Type: Report from Study
  Country: NL (occurrence: NL)
  Receive Date: 20211210
  Receipt Date: 20220202
  Transmission Date: 20220424
  Serious: Yes (Other)
  Sender: FDA-Public Use
  Company Number: NL-AMGEN-NLDSL2021191308

PATIENT
  Age: 82 Year
  Sex: Male

DRUGS (3)
  1. PROLIA [Suspect]
     Active Substance: DENOSUMAB
     Indication: Prophylaxis
     Dosage: 60 MILLIGRAM/ML, Q6MO
     Route: 058
     Dates: start: 20211028
  2. BUPRENORPHINE [Concomitant]
     Active Substance: BUPRENORPHINE
     Dosage: 10MCG/HR, QWK
  3. GOSERELIN [Concomitant]
     Active Substance: GOSERELIN
     Dosage: 10.8 MILLIGRAM, QMO

REACTIONS (3)
  - Fall [Unknown]
  - Metastases to bone [Unknown]
  - Off label use [Unknown]

NARRATIVE: CASE EVENT DATE: 20211001
